FAERS Safety Report 7435656-2 (Version None)
Quarter: 2011Q2

REPORT INFORMATION
  Report Type: 
  Country: None (occurrence: None)
  Receive Date: 20110425
  Receipt Date: 20110414
  Transmission Date: 20111010
  Serious: Yes (Death)
  Sender: FDA-Public Use
  Company Number: CO-PFIZER INC-2009255969

PATIENT
  Age: 12 Year
  Sex: Female
  Weight: 44.5 kg

DRUGS (2)
  1. BENZATHINE BENZYLPENICILLIN [Suspect]
     Indication: RHEUMATIC FEVER
     Dosage: 1,200,000 IU EVERY 21 DAYS
     Route: 030
     Dates: start: 20060620
  2. SILDENAFIL CITRATE [Suspect]
     Indication: PULMONARY HYPERTENSION
     Dosage: 40 MG, 3X/DAY
     Route: 048
     Dates: start: 20070912

REACTIONS (1)
  - RESPIRATORY ARREST [None]
